FAERS Safety Report 5847432-2 (Version None)
Quarter: 2008Q3

REPORT INFORMATION
  Report Type: 
  Country: None (occurrence: None)
  Receive Date: 20080815
  Receipt Date: 20080807
  Transmission Date: 20090109
  Serious: Yes (Other)
  Sender: FDA-Public Use
  Company Number: GB-MERCK-0808GBR00038

PATIENT
  Age: 58 Year
  Sex: Female
  Weight: 73 kg

DRUGS (9)
  1. ZETIA [Suspect]
     Indication: TYPE IIA HYPERLIPIDAEMIA
     Route: 048
     Dates: start: 20070501
  2. ATORVASTATIN [Suspect]
     Indication: TYPE IIA HYPERLIPIDAEMIA
     Route: 048
     Dates: start: 20070501
  3. VARENICLINE TARTRATE [Suspect]
     Route: 048
  4. ALENDRONATE SODIUM [Concomitant]
     Route: 065
  5. GABAPENTIN [Concomitant]
     Route: 065
  6. LEVOTHYROXINE SODIUM [Concomitant]
     Route: 065
  7. OMEPRAZOLE [Concomitant]
     Route: 065
  8. SENNA [Concomitant]
     Route: 065
  9. SERTRALINE HYDROCHLORIDE [Concomitant]
     Route: 065

REACTIONS (3)
  - BACK PAIN [None]
  - CHROMATURIA [None]
  - MUSCLE SPASMS [None]
